FAERS Safety Report 10639994 (Version 1)
Quarter: 2014Q4

REPORT INFORMATION
  Report Type: Spontaneous
  Country: US (occurrence: None)
  Receive Date: 20141205
  Receipt Date: 20141205
  Transmission Date: 20150529
  Serious: Yes (Hospitalization)
  Sender: FDA-Public Use
  Company Number: None

PATIENT
  Age: 85 Year
  Sex: Female
  Weight: 50 kg

DRUGS (18)
  1. MEMANTINE (NAMENDA) [Concomitant]
  2. PRADAXA [Suspect]
     Active Substance: DABIGATRAN ETEXILATE MESYLATE
     Indication: ATRIAL FIBRILLATION
     Route: 048
  3. PRAVASTATIN (PRAVACHOL) [Concomitant]
  4. TYLENOL [Concomitant]
     Active Substance: ACETAMINOPHEN
  5. ASPIRIN. [Concomitant]
     Active Substance: ASPIRIN
  6. LOSARTAN (COZAAR) [Concomitant]
  7. ALUMINUM AND MAGNESIUM HYDROXIDE-SIMETHICONE (MAALOX) [Concomitant]
  8. HYDROCODONE-ACETAMINOPHEN (NORCO) [Concomitant]
  9. ONDANSETRON (ZOFRAN ODT) [Concomitant]
  10. POTASSIUM CHLORIDE (K-TAB) [Concomitant]
  11. CARVEDILOL (COREG) [Concomitant]
  12. DOCUSATE SODIUM (COLACE) [Concomitant]
  13. FUROSEMIDE (LASIX) [Concomitant]
  14. BISACODYL. [Concomitant]
     Active Substance: BISACODYL
  15. SYNTHROID [Concomitant]
     Active Substance: LEVOTHYROXINE SODIUM
  16. MULTIPLE VITAMINS-MINERALS (OCUVITE PRESERVISION) [Concomitant]
  17. OMEPRAZOLE (PRILOSEC) [Concomitant]
  18. DONEPEZIL (ARICEPT) [Concomitant]

REACTIONS (2)
  - Abdominal pain [None]
  - Melaena [None]

NARRATIVE: CASE EVENT DATE: 20141203
